FAERS Safety Report 13573769 (Version 4)
Quarter: 2017Q2

REPORT INFORMATION
  Report Type: Report from Study
  Country: DE (occurrence: DE)
  Receive Date: 20170523
  Receipt Date: 20170626
  Transmission Date: 20170830
  Serious: Yes (Hospitalization)
  Sender: FDA-Public Use
  Company Number: DE-JNJFOC-20170519202

PATIENT
  Age: 14 Year
  Sex: Female
  Weight: 41.4 kg

DRUGS (7)
  1. PIRITRAMIDE [Concomitant]
     Active Substance: PIRITRAMIDE
     Route: 065
  2. METAMIZOLE [Concomitant]
     Active Substance: METAMIZOLE
     Route: 065
  3. REMICADE [Suspect]
     Active Substance: INFLIXIMAB
     Indication: CROHN^S DISEASE
     Route: 042
  4. TOBRAMYCIN. [Concomitant]
     Active Substance: TOBRAMYCIN
     Route: 065
  5. METRONIDAZOLE. [Concomitant]
     Active Substance: METRONIDAZOLE
     Route: 065
  6. AZATHIOPRINE. [Concomitant]
     Active Substance: AZATHIOPRINE
     Route: 065
  7. PARACETAMOL [Concomitant]
     Active Substance: ACETAMINOPHEN
     Route: 065

REACTIONS (1)
  - Crohn^s disease [Recovered/Resolved]

NARRATIVE: CASE EVENT DATE: 20170515
